FAERS Safety Report 25184149 (Version 2)
Quarter: 2025Q2

REPORT INFORMATION
  Report Type: Spontaneous
  Country: CN (occurrence: CN)
  Receive Date: 20250410
  Receipt Date: 20250418
  Transmission Date: 20250717
  Serious: Yes (Other)
  Sender: MERCK SHARP & DOHME LLC
  Company Number: CN-009507513-2273410

PATIENT
  Age: 57 Year
  Sex: Female

DRUGS (8)
  1. ERTAPENEM [Suspect]
     Active Substance: ERTAPENEM
     Indication: Pneumonia
  2. VALPROATE SODIUM [Concomitant]
     Active Substance: VALPROATE SODIUM
  3. ETORICOXIB [Concomitant]
     Active Substance: ETORICOXIB
  4. METFORMIN [Concomitant]
     Active Substance: METFORMIN HYDROCHLORIDE
  5. INSULIN ASPART [Concomitant]
     Active Substance: INSULIN ASPART
  6. TRAMADOL [Concomitant]
     Active Substance: TRAMADOL
  7. OXYCODONE [Concomitant]
     Active Substance: OXYCODONE
  8. SITAGLIPTIN PHOSPHATE [Concomitant]
     Active Substance: SITAGLIPTIN PHOSPHATE

REACTIONS (1)
  - Epilepsy [Recovered/Resolved]
